FAERS Safety Report 20132810 (Version 1)
Quarter: 2021Q4

REPORT INFORMATION
  Report Type: Report from Study
  Country: BR (occurrence: BR)
  Receive Date: 20211130
  Receipt Date: 20211130
  Transmission Date: 20220303
  Serious: Yes (Disabling)
  Sender: FDA-Public Use
  Company Number: BR-NOVARTISPH-NVSC2020BR086814

PATIENT
  Age: 36 Year
  Sex: Female

DRUGS (7)
  1. COSENTYX [Suspect]
     Active Substance: SECUKINUMAB
     Indication: Psoriatic arthropathy
     Dosage: UNK
     Route: 065
     Dates: start: 20190913
  2. COSENTYX [Suspect]
     Active Substance: SECUKINUMAB
     Dosage: UNK, LOADING DOSES
     Route: 065
     Dates: start: 201909
  3. COSENTYX [Suspect]
     Active Substance: SECUKINUMAB
     Dosage: 150 MG, QMO
     Route: 065
  4. DICLOFENAC [Suspect]
     Active Substance: DICLOFENAC
     Indication: Pain
     Route: 065
  5. NIMESULIDE [Concomitant]
     Active Substance: NIMESULIDE
     Indication: Pyrexia
     Route: 065
  6. METHOTREXATE [Concomitant]
     Active Substance: METHOTREXATE
     Indication: Product used for unknown indication
     Dosage: UNK
     Route: 065
  7. PREDNISONE [Concomitant]
     Active Substance: PREDNISONE
     Indication: Product used for unknown indication
     Dosage: UNK
     Route: 065

REACTIONS (26)
  - Peripheral swelling [Not Recovered/Not Resolved]
  - Swelling [Unknown]
  - Arthralgia [Unknown]
  - Joint swelling [Not Recovered/Not Resolved]
  - Arthritis [Not Recovered/Not Resolved]
  - Antibody test abnormal [Unknown]
  - Dry skin [Unknown]
  - Feeling of despair [Recovering/Resolving]
  - Musculoskeletal stiffness [Unknown]
  - Neck pain [Unknown]
  - Mass [Unknown]
  - Skin lesion [Unknown]
  - Alopecia [Unknown]
  - Pain [Recovered/Resolved]
  - Gait disturbance [Recovered/Resolved]
  - Mobility decreased [Recovered/Resolved]
  - Condition aggravated [Unknown]
  - Pyrexia [Unknown]
  - Oral discomfort [Unknown]
  - Psoriasis [Not Recovered/Not Resolved]
  - Pruritus [Recovering/Resolving]
  - Scab [Recovering/Resolving]
  - Rash pruritic [Recovering/Resolving]
  - Skin discolouration [Recovering/Resolving]
  - Investigation abnormal [Unknown]
  - Inappropriate schedule of product administration [Unknown]

NARRATIVE: CASE EVENT DATE: 20200101
